FAERS Safety Report 20907282 (Version 1)
Quarter: 2022Q2

REPORT INFORMATION
  Report Type: Other
  Country: US (occurrence: None)
  Receive Date: 20220602
  Receipt Date: 20220602
  Transmission Date: 20220721
  Serious: No
  Sender: FDA-Public Use
  Company Number: US-Merck Healthcare KGaA-9325697

PATIENT
  Age: 55 Year
  Sex: Male

DRUGS (2)
  1. LEVOTHYROXINE SODIUM [Interacting]
     Active Substance: LEVOTHYROXINE SODIUM
     Indication: Primary hypothyroidism
  2. CARBAMAZEPINE [Interacting]
     Active Substance: CARBAMAZEPINE
     Indication: Affective disorder

REACTIONS (7)
  - Fatigue [Recovering/Resolving]
  - Depressed mood [Recovering/Resolving]
  - Hyponatraemia [Recovering/Resolving]
  - Blood thyroid stimulating hormone increased [Recovering/Resolving]
  - Thyroxine free decreased [Recovering/Resolving]
  - Drug interaction [Recovered/Resolved]
  - Drug ineffective [Unknown]
